FAERS Safety Report 5426180-7 (Version None)
Quarter: 2007Q3

REPORT INFORMATION
  Report Type: 
  Country: None (occurrence: None)
  Receive Date: 20070827
  Receipt Date: 20070821
  Transmission Date: 20080115
  Serious: Yes (Death)
  Sender: FDA-Public Use
  Company Number: A0673443A

PATIENT
  Age: 53 Year
  Sex: Female

DRUGS (3)
  1. VALTREX [Suspect]
     Route: 048
     Dates: start: 20061231, end: 20070104
  2. KLONOPIN [Concomitant]
  3. PERCOCET [Concomitant]

REACTIONS (3)
  - CRYING [None]
  - DEATH [None]
  - FEELING ABNORMAL [None]
